FAERS Safety Report 8594571-1 (Version None)
Quarter: 2012Q3

REPORT INFORMATION
  Report Type: 
  Country: None (occurrence: None)
  Receive Date: 20120815
  Receipt Date: 20120807
  Transmission Date: 20120928
  Serious: Yes (Other)
  Sender: FDA-Public Use
  Company Number: US-ELI_LILLY_AND_COMPANY-US201208003099

PATIENT
  Sex: Female

DRUGS (2)
  1. CYMBALTA [Suspect]
     Indication: DEPRESSION
     Dosage: 60 MG, BID
     Dates: start: 20100101
  2. HUMALOG [Concomitant]

REACTIONS (7)
  - VISION BLURRED [None]
  - BLISTER [None]
  - LEG AMPUTATION [None]
  - STOMATITIS [None]
  - DIZZINESS [None]
  - DIABETES MELLITUS INADEQUATE CONTROL [None]
  - INTENTIONAL DRUG MISUSE [None]
